FAERS Safety Report 5496634-6 (Version None)
Quarter: 2007Q4

REPORT INFORMATION
  Report Type: 
  Country: None (occurrence: None)
  Receive Date: 20071025
  Receipt Date: 20070627
  Transmission Date: 20080405
  Serious: No
  Sender: FDA-Public Use
  Company Number: A0660323A

PATIENT
  Age: 28 Year
  Sex: Female

DRUGS (7)
  1. ADVAIR DISKUS 100/50 [Suspect]
     Indication: ASTHMA
     Dosage: 1PUFF TWICE PER DAY
     Route: 055
     Dates: start: 20061101
  2. METHADONE HCL [Concomitant]
  3. HALDOL [Concomitant]
  4. TEGRETOL [Concomitant]
  5. PROAIR HFA [Concomitant]
  6. REMERON [Concomitant]
  7. ALBUTEROL [Concomitant]

REACTIONS (2)
  - DRUG EXPOSURE DURING PREGNANCY [None]
  - DRUG SCREEN FALSE POSITIVE [None]
